FAERS Safety Report 7172798-3 (Version None)
Quarter: 2010Q4

REPORT INFORMATION
  Report Type: 
  Country: None (occurrence: None)
  Receive Date: 20101219
  Receipt Date: 20100212
  Transmission Date: 20110411
  Serious: No
  Sender: FDA-Public Use
  Company Number: US-AMGEN-KDL392469

PATIENT

DRUGS (5)
  1. ENBREL [Suspect]
     Indication: PRODUCT USED FOR UNKNOWN INDICATION
     Dosage: 50 MG, QWK
     Route: 058
  2. METHOTREXATE [Concomitant]
     Dosage: 2.5 MG, UNK
  3. LEVOTHYROXINE SODIUM [Concomitant]
     Dosage: 125 A?G, UNK
  4. FOLIC ACID [Concomitant]
     Dosage: 1 MG, UNK
  5. ERGOCALCIFEROL [Concomitant]
     Dosage: 50000 IU/KG, UNK

REACTIONS (4)
  - FEELING HOT [None]
  - PRURITUS [None]
  - SKIN IRRITATION [None]
  - SWELLING [None]
